FAERS Safety Report 9719394 (Version 2)
Quarter: 2013Q4

REPORT INFORMATION
  Report Type: Spontaneous
  Country: CA (occurrence: CA)
  Receive Date: 20131128
  Receipt Date: 20131128
  Transmission Date: 20140711
  Serious: Yes (Death)
  Sender: FDA-Public Use
  Company Number: CA-AMGEN-CANSP2013016402

PATIENT
  Age: 76 Year
  Sex: Female
  Weight: 49.09 kg

DRUGS (1)
  1. PROLIA [Suspect]
     Indication: OSTEOPOROSIS POSTMENOPAUSAL
     Dosage: UNK
     Route: 065
     Dates: start: 20111013

REACTIONS (6)
  - Death [Fatal]
  - Hypoaesthesia [Not Recovered/Not Resolved]
  - Tendon rupture [Not Recovered/Not Resolved]
  - Finger deformity [Not Recovered/Not Resolved]
  - Nerve block [Not Recovered/Not Resolved]
  - Pain in extremity [Not Recovered/Not Resolved]
